FAERS Safety Report 15155457 (Version 1)
Quarter: 2018Q3

REPORT INFORMATION
  Report Type: Spontaneous
  Country: GB (occurrence: IT)
  Receive Date: 20180717
  Receipt Date: 20180717
  Transmission Date: 20181010
  Serious: Yes (Other)
  Sender: FDA-Public Use
  Company Number: IT-FRESENIUS KABI-FK201807810

PATIENT
  Age: 45 Year
  Sex: Male

DRUGS (5)
  1. LINEZOLID INJECTION [Suspect]
     Active Substance: LINEZOLID
     Indication: PNEUMONIA STAPHYLOCOCCAL
     Route: 065
  2. LINEZOLID INJECTION [Suspect]
     Active Substance: LINEZOLID
     Indication: PNEUMONIA
     Route: 065
  3. AZYTHROMICIN [Concomitant]
  4. CEFTOBIPROLE MEDOCARIL SODIUM [Suspect]
     Active Substance: CEFTOBIPROLE MEDOCARIL
     Indication: PNEUMONIA STAPHYLOCOCCAL
     Route: 065
  5. PIPERACILLIN/TAZOBACTAM [Concomitant]
     Active Substance: PIPERACILLIN SODIUM\TAZOBACTAM SODIUM
     Indication: PRODUCT USED FOR UNKNOWN INDICATION
     Route: 065

REACTIONS (3)
  - Gangrene [Unknown]
  - Pneumonia necrotising [Unknown]
  - Alveolar lung disease [Unknown]
